FAERS Safety Report 7884856-6 (Version None)
Quarter: 2011Q4

REPORT INFORMATION
  Report Type: 
  Country: None (occurrence: None)
  Receive Date: 20111102
  Receipt Date: 20111026
  Transmission Date: 20120403
  Serious: Yes (Other)
  Sender: FDA-Public Use
  Company Number: PHHY2011BR67007

PATIENT
  Sex: Female

DRUGS (1)
  1. DIOVAN HCT [Suspect]
     Dosage: 1 TABLET (160/12.5MG) IN THE MORNING AND A HALF TABLET (160/12.5MG) AT NIGHT

REACTIONS (6)
  - NECK PAIN [None]
  - HEART RATE INCREASED [None]
  - CARDIAC ARREST [None]
  - WRONG TECHNIQUE IN DRUG USAGE PROCESS [None]
  - BLOOD PRESSURE INCREASED [None]
  - DIZZINESS [None]
